FAERS Safety Report 7412239-1 (Version None)
Quarter: 2011Q2

REPORT INFORMATION
  Report Type: 
  Country: None (occurrence: None)
  Receive Date: 20110413
  Receipt Date: 20110404
  Transmission Date: 20111010
  Serious: Yes (Hospitalization, Other)
  Sender: FDA-Public Use
  Company Number: US-PFIZER INC-2011059847

PATIENT
  Sex: Male

DRUGS (1)
  1. PRISTIQ [Suspect]
     Dosage: 50 MG, 1X/DAY
     Route: 065
     Dates: start: 20091009, end: 20091224

REACTIONS (3)
  - FALL [None]
  - LACERATION [None]
  - LOSS OF CONSCIOUSNESS [None]
